FAERS Safety Report 11547545 (Version 1)
Quarter: 2015Q3

REPORT INFORMATION
  Report Type: Spontaneous
  Country: US (occurrence: US)
  Receive Date: 20150903
  Receipt Date: 20150903
  Transmission Date: 20151125
  Serious: No
  Sender: FDA-Public Use
  Company Number: US-ELI_LILLY_AND_COMPANY-US201103000399

PATIENT
  Sex: Female

DRUGS (3)
  1. HUMALOG [Suspect]
     Active Substance: INSULIN LISPRO
     Indication: DIABETES MELLITUS
     Dosage: 20 U, 3/D
     Route: 065
     Dates: start: 2001
  2. JANUVIA [Concomitant]
     Active Substance: SITAGLIPTIN PHOSPHATE
  3. HUMALOG [Suspect]
     Active Substance: INSULIN LISPRO
     Dosage: 20 U, 3/D
     Route: 065
     Dates: start: 2001

REACTIONS (6)
  - Blood glucose increased [Unknown]
  - Peripheral swelling [Unknown]
  - Sinusitis [Unknown]
  - Raynaud^s phenomenon [Not Recovered/Not Resolved]
  - Hypoaesthesia [Unknown]
  - Underdose [Unknown]

NARRATIVE: CASE EVENT DATE: 20110227
